FAERS Safety Report 11806465 (Version 1)
Quarter: 2015Q4

REPORT INFORMATION
  Report Type: Spontaneous
  Country: US (occurrence: US)
  Receive Date: 20151207
  Receipt Date: 20151207
  Transmission Date: 20160305
  Serious: Yes (Hospitalization, Other)
  Sender: FDA-Public Use
  Company Number: US-IPCA LABORATORIES LIMITED-IPC201511-000830

PATIENT
  Age: 39 Year
  Sex: Female

DRUGS (6)
  1. PRASUGREL [Concomitant]
     Active Substance: PRASUGREL
  2. DEXAMETHASONE. [Suspect]
     Active Substance: DEXAMETHASONE
  3. ASPIRIN. [Concomitant]
     Active Substance: ASPIRIN
  4. METOPROLOL TARTRATE. [Suspect]
     Active Substance: METOPROLOL TARTRATE
  5. MORPHINE [Concomitant]
     Active Substance: MORPHINE
  6. HEPARIN [Concomitant]
     Active Substance: HEPARIN SODIUM

REACTIONS (6)
  - Cardiogenic shock [Unknown]
  - Phaeochromocytoma crisis [Unknown]
  - Pulmonary oedema [Unknown]
  - Myocardial infarction [Recovered/Resolved]
  - Circulatory collapse [Recovered/Resolved]
  - Acute respiratory failure [Unknown]
